FAERS Safety Report 23422445 (Version 1)
Quarter: 2024Q1

REPORT INFORMATION
  Report Type: Spontaneous
  Country: US (occurrence: None)
  Receive Date: 20240118
  Receipt Date: 20240118
  Transmission Date: 20240410
  Serious: No
  Sender: FDA-Public Use
  Company Number: None

PATIENT
  Age: 62 Year
  Sex: Female
  Weight: 69.75 kg

DRUGS (2)
  1. DUPIXENT [Suspect]
     Active Substance: DUPILUMAB
     Indication: Pruritus
     Dates: start: 20231125, end: 20231210
  2. ADULT MULTIVITAMIN [Concomitant]

REACTIONS (3)
  - Diplopia [None]
  - Therapy cessation [None]
  - Visual impairment [None]

NARRATIVE: CASE EVENT DATE: 20231211
